FAERS Safety Report 6125164-3 (Version None)
Quarter: 2009Q1

REPORT INFORMATION
  Report Type: 
  Country: None (occurrence: None)
  Receive Date: 20090318
  Receipt Date: 20090304
  Transmission Date: 20090719
  Serious: Yes (Other)
  Sender: FDA-Public Use
  Company Number: CHPA2009US06416

PATIENT
  Age: 35 Year
  Sex: Female

DRUGS (1)
  1. VOLTAREN [Suspect]
     Indication: MYALGIA
     Dosage: TOPICAL
     Route: 061
     Dates: start: 20080101

REACTIONS (2)
  - RAYNAUD'S PHENOMENON [None]
  - WRONG TECHNIQUE IN DRUG USAGE PROCESS [None]
